FAERS Safety Report 4913790-6 (Version None)
Quarter: 2006Q1

REPORT INFORMATION
  Report Type: 
  Country: None (occurrence: None)
  Receive Date: 20060216
  Receipt Date: 20060209
  Transmission Date: 20060701
  Serious: Yes (Other)
  Sender: FDA-Public Use
  Company Number: JP-JPN-A200600526

PATIENT
  Age: 56 Year
  Sex: Male

DRUGS (2)
  1. ALKERAN [Suspect]
     Indication: BONE MARROW TRANSPLANT
     Dosage: 2.7U PER DAY
     Route: 042
  2. FLUDARABINE PHOSPHATE [Concomitant]
     Route: 042

REACTIONS (1)
  - BLOOD BILIRUBIN INCREASED [None]
